FAERS Safety Report 20310645 (Version 1)
Quarter: 2022Q1

REPORT INFORMATION
  Report Type: Report from Study
  Country: US (occurrence: US)
  Receive Date: 20220107
  Receipt Date: 20220107
  Transmission Date: 20220423
  Serious: Yes (Other)
  Sender: FDA-Public Use
  Company Number: US-JNJFOC-20220107788

PATIENT
  Age: 26 Year
  Sex: Male

DRUGS (5)
  1. SPRAVATO [Suspect]
     Active Substance: ESKETAMINE
     Indication: Depression
     Dosage: ONE DOSE
     Dates: start: 20211130, end: 20211130
  2. SPRAVATO [Suspect]
     Active Substance: ESKETAMINE
     Dosage: 3 DOSES
     Dates: start: 20211202, end: 20211209
  3. SPRAVATO [Suspect]
     Active Substance: ESKETAMINE
     Dosage: 1 DOSE
     Dates: start: 20211228, end: 20211228
  4. SPRAVATO [Suspect]
     Active Substance: ESKETAMINE
     Dates: start: 20211230, end: 20211230
  5. SPRAVATO [Suspect]
     Active Substance: ESKETAMINE
     Dates: start: 20220104

REACTIONS (1)
  - Vomiting [Recovered/Resolved]

NARRATIVE: CASE EVENT DATE: 20211230
